FAERS Safety Report 20054721 (Version 1)
Quarter: 2021Q4

REPORT INFORMATION
  Report Type: Spontaneous
  Country: US (occurrence: None)
  Receive Date: 20211109
  Receipt Date: 20211109
  Transmission Date: 20220303
  Serious: Yes (Hospitalization)
  Sender: FDA-Public Use
  Company Number: None

PATIENT
  Age: 57 Year
  Sex: Female

DRUGS (1)
  1. CAPECITABINE [Suspect]
     Active Substance: CAPECITABINE
     Indication: Product used for unknown indication
     Dosage: FREQUENCY : TWICE A DAY;?
     Route: 048
     Dates: start: 202104

REACTIONS (6)
  - Dysphagia [None]
  - Rheumatoid arthritis [None]
  - Product use complaint [None]
  - Cognitive disorder [None]
  - Aphasia [None]
  - Drug ineffective [None]

NARRATIVE: CASE EVENT DATE: 20210818
